FAERS Safety Report 8159518-0 (Version None)
Quarter: 2012Q1

REPORT INFORMATION
  Report Type: 
  Country: None (occurrence: None)
  Receive Date: 20120223
  Receipt Date: 20120209
  Transmission Date: 20120608
  Serious: Yes (Other)
  Sender: FDA-Public Use
  Company Number: JP-ROCHE-1037841

PATIENT
  Sex: Male
  Weight: 57 kg

DRUGS (18)
  1. RIMATIL [Concomitant]
     Indication: RHEUMATOID ARTHRITIS
     Route: 048
     Dates: start: 20080419
  2. CELECOXIB [Concomitant]
     Indication: RHEUMATOID ARTHRITIS
     Route: 048
     Dates: start: 20080409
  3. ACTEMRA [Suspect]
     Route: 041
     Dates: start: 20080812, end: 20080812
  4. PREDNISOLONE [Concomitant]
     Indication: RHEUMATOID ARTHRITIS
     Route: 048
     Dates: end: 20080630
  5. PREDNISOLONE [Concomitant]
     Route: 048
     Dates: start: 20081015, end: 20081104
  6. PREDNISOLONE [Concomitant]
     Route: 048
     Dates: start: 20081105, end: 20081202
  7. OMEPRAZOLE [Concomitant]
     Indication: PROPHYLAXIS
     Route: 048
     Dates: start: 20080409
  8. ALFAROL [Concomitant]
     Indication: PROPHYLAXIS
     Route: 048
     Dates: start: 20080419
  9. PREDNISOLONE [Concomitant]
     Route: 048
     Dates: start: 20080925, end: 20081014
  10. AZULFIDINE [Concomitant]
     Indication: RHEUMATOID ARTHRITIS
     Route: 048
     Dates: start: 20080409
  11. ACTEMRA [Suspect]
     Route: 041
     Dates: start: 20080715, end: 20080715
  12. ISONIAZID [Concomitant]
     Indication: ANTIBIOTIC PROPHYLAXIS
     Route: 048
     Dates: start: 20080617
  13. PREDNISOLONE [Concomitant]
     Route: 048
     Dates: start: 20080911, end: 20080924
  14. NATEGLINIDE [Concomitant]
     Indication: DIABETES MELLITUS
     Route: 048
  15. ACTEMRA [Suspect]
     Indication: RHEUMATOID ARTHRITIS
     Route: 041
     Dates: start: 20080618, end: 20080618
  16. PREDNISOLONE [Concomitant]
     Route: 048
     Dates: start: 20080701, end: 20080714
  17. PREDNISOLONE [Concomitant]
     Route: 048
     Dates: start: 20080715, end: 20080820
  18. PREDNISOLONE [Concomitant]
     Route: 048
     Dates: start: 20081203

REACTIONS (3)
  - VASCULITIS [None]
  - NEUROPATHY PERIPHERAL [None]
  - CUTANEOUS VASCULITIS [None]
